FAERS Safety Report 25507933 (Version 1)
Quarter: 2025Q3

REPORT INFORMATION
  Report Type: Report from Study
  Country: BR (occurrence: BR)
  Receive Date: 20250703
  Receipt Date: 20250703
  Transmission Date: 20251021
  Serious: Yes (Hospitalization)
  Sender: BIOGEN
  Company Number: BR-BIOGEN-2025BI01315647

PATIENT
  Sex: Female
  Weight: 85.2 kg

DRUGS (1)
  1. TYSABRI [Suspect]
     Active Substance: NATALIZUMAB
     Indication: Multiple sclerosis
     Dosage: 300MG/15ML (20MG/ML)
     Route: 050
     Dates: start: 2019

REACTIONS (1)
  - Multiple sclerosis relapse [Recovered/Resolved with Sequelae]
